FAERS Safety Report 12905132 (Version 1)
Quarter: 2016Q4

REPORT INFORMATION
  Report Type: Spontaneous
  Country: US (occurrence: US)
  Receive Date: 20161102
  Receipt Date: 20161102
  Transmission Date: 20170207
  Serious: No
  Sender: FDA-Public Use
  Company Number: US-ASTRAZENECA-2016SF10612

PATIENT
  Sex: Female

DRUGS (6)
  1. BYETTA [Suspect]
     Active Substance: EXENATIDE
     Indication: GLYCOSYLATED HAEMOGLOBIN
     Route: 065
  2. BYETTA [Suspect]
     Active Substance: EXENATIDE
     Indication: INSULIN RESISTANCE
     Route: 065
  3. BYETTA [Suspect]
     Active Substance: EXENATIDE
     Indication: GLYCOSYLATED HAEMOGLOBIN
     Route: 065
  4. BYETTA [Suspect]
     Active Substance: EXENATIDE
     Indication: INSULIN RESISTANCE
     Route: 065
  5. BYETTA [Suspect]
     Active Substance: EXENATIDE
     Indication: GLYCOSYLATED HAEMOGLOBIN
     Route: 065
  6. BYETTA [Suspect]
     Active Substance: EXENATIDE
     Indication: INSULIN RESISTANCE
     Route: 065

REACTIONS (6)
  - Intentional product misuse [Unknown]
  - Weight decreased [Unknown]
  - Product use issue [Unknown]
  - Off label use [Unknown]
  - Intentional device misuse [Unknown]
  - Drug ineffective [Unknown]
